FAERS Safety Report 13930469 (Version 1)
Quarter: 2017Q3

REPORT INFORMATION
  Report Type: Spontaneous
  Country: DE (occurrence: DE)
  Receive Date: 20170901
  Receipt Date: 20170901
  Transmission Date: 20171127
  Serious: Yes (Congenital Anomaly, Other)
  Sender: FDA-Public Use
  Company Number: GXKR2017DE004314

PATIENT
  Sex: Male
  Weight: 3.4 kg

DRUGS (3)
  1. QUETIAPINE. [Suspect]
     Active Substance: QUETIAPINE
     Indication: FOETAL EXPOSURE DURING PREGNANCY
     Dosage: MATERNAL DOSE: 300 MG BID
     Route: 064
     Dates: start: 20160213, end: 20161111
  2. ELONTRIL [Suspect]
     Active Substance: BUPROPION HYDROCHLORIDE
     Indication: FOETAL EXPOSURE DURING PREGNANCY
     Dosage: MATERNAL DOSE: UNKNOWN (ORAL)
     Route: 064
  3. QUETIAPINE. [Suspect]
     Active Substance: QUETIAPINE
     Dosage: MATERNAL DOSE: REDUCED TO 150 MG, QD
     Route: 064

REACTIONS (2)
  - Vein of Galen aneurysmal malformation [Not Recovered/Not Resolved]
  - Hydrocephalus [Not Recovered/Not Resolved]
